FAERS Safety Report 9611506 (Version 1)
Quarter: 2013Q4

REPORT INFORMATION
  Report Type: Report from Study
  Country: ZA (occurrence: ZA)
  Receive Date: 20131010
  Receipt Date: 20131010
  Transmission Date: 20140711
  Serious: Yes (Death)
  Sender: FDA-Public Use
  Company Number: ZA-ROCHE-1286978

PATIENT
  Age: 42 Year
  Sex: Male

DRUGS (7)
  1. MIRCERA [Suspect]
     Indication: NEPHROGENIC ANAEMIA
     Route: 058
     Dates: start: 201110
  2. MIRCERA [Suspect]
     Route: 058
     Dates: start: 201208
  3. MIRCERA [Suspect]
     Route: 058
     Dates: start: 201301, end: 201308
  4. AMLOC (SOUTH AFRICA) [Concomitant]
     Route: 065
  5. PREXUM [Concomitant]
     Route: 065
  6. ECOTRIN [Concomitant]
     Route: 065
  7. ONE-ALPHA [Concomitant]
     Route: 065

REACTIONS (1)
  - Death [Fatal]
